FAERS Safety Report 12864597 (Version 1)
Quarter: 2016Q4

REPORT INFORMATION
  Report Type: Spontaneous
  Country: US (occurrence: US)
  Receive Date: 20161020
  Receipt Date: 20161020
  Transmission Date: 20170207
  Serious: Yes (Hospitalization)
  Sender: FDA-Public Use
  Company Number: PHEH2016US027048

PATIENT
  Age: 53 Year
  Weight: 94.8 kg

DRUGS (1)
  1. VOTRIENT [Suspect]
     Active Substance: PAZOPANIB HYDROCHLORIDE
     Indication: PRODUCT USED FOR UNKNOWN INDICATION
     Dosage: 400 MG, BID
     Route: 048
     Dates: start: 20160824

REACTIONS (1)
  - Pneumothorax [Not Recovered/Not Resolved]

NARRATIVE: CASE EVENT DATE: 20161014
